FAERS Safety Report 23295333 (Version 4)
Quarter: 2024Q1

REPORT INFORMATION
  Report Type: Spontaneous
  Country: JP (occurrence: None)
  Receive Date: 20231214
  Receipt Date: 20240131
  Transmission Date: 20240410
  Serious: Yes (Hospitalization)
  Sender: FDA-Public Use
  Company Number: 2023A281522

PATIENT
  Age: 89 Year
  Sex: Female

DRUGS (4)
  1. BREZTRI [Suspect]
     Active Substance: BUDESONIDE\FORMOTEROL\GLYCOPYRROLATE
     Indication: Emphysema
     Dosage: DOSE UNKNOWN
     Route: 055
  2. MOVICOL [Concomitant]
     Active Substance: POLYETHYLENE GLYCOL 3350\POTASSIUM CHLORIDE\SODIUM BICARBONATE\SODIUM CHLORIDE
     Dosage: DOSE UNKNOWN
  3. RISEDRONATE SODIUM [Concomitant]
     Active Substance: RISEDRONATE SODIUM
  4. TULOBUTEROL HYDROCHLORIDE [Concomitant]
     Active Substance: TULOBUTEROL HYDROCHLORIDE

REACTIONS (1)
  - Cystitis [Recovering/Resolving]

NARRATIVE: CASE EVENT DATE: 20231201
